FAERS Safety Report 15297656 (Version 1)
Quarter: 2018Q3

REPORT INFORMATION
  Report Type: Spontaneous
  Country: JP (occurrence: JP)
  Receive Date: 20180820
  Receipt Date: 20180820
  Transmission Date: 20181010
  Serious: Yes (Death, Other)
  Sender: FDA-Public Use
  Company Number: JP-PFIZER INC-2018329340

PATIENT
  Sex: Male

DRUGS (3)
  1. INLYTA [Suspect]
     Active Substance: AXITINIB
     Indication: RENAL CELL CARCINOMA
     Dosage: 10 MG, DAILY
     Route: 048
  2. SUTENT [Suspect]
     Active Substance: SUNITINIB MALATE
     Indication: RENAL CELL CARCINOMA
     Dosage: 50 MG, DAILY
     Route: 048
  3. DENOSUMAB [Concomitant]
     Active Substance: DENOSUMAB

REACTIONS (9)
  - Constipation [Unknown]
  - Hepatic failure [Fatal]
  - Malaise [Unknown]
  - Mucous membrane disorder [Unknown]
  - Platelet count decreased [Unknown]
  - Neoplasm progression [Unknown]
  - Dysgeusia [Unknown]
  - Hypothyroidism [Unknown]
  - Hypertension [Unknown]
